FAERS Safety Report 9494105 (Version 1)
Quarter: 2013Q3

REPORT INFORMATION
  Report Type: Report from Study
  Country: GB (occurrence: GB)
  Receive Date: 20130903
  Receipt Date: 20130903
  Transmission Date: 20140515
  Serious: Yes (Hospitalization)
  Sender: FDA-Public Use
  Company Number: GB-ROCHE-1269552

PATIENT
  Age: 58 Year
  Sex: Female
  Weight: 83 kg

DRUGS (12)
  1. RITUXIMAB [Suspect]
     Indication: RHEUMATOID ARTHRITIS
     Dosage: LAST DOSE PRIOR TO SAE: 14 MAR 2013
     Route: 065
     Dates: start: 20090313
  2. GABAPENTIN [Concomitant]
     Route: 048
  3. PARACETAMOL [Concomitant]
     Route: 048
  4. FERROUS FUMARATE [Concomitant]
     Route: 048
  5. LEVOTHYROXINE [Concomitant]
     Route: 048
  6. CETRIZINE [Concomitant]
     Route: 048
  7. LOSARTAN [Concomitant]
     Route: 048
  8. AMITRIPTYLINE [Concomitant]
     Route: 048
  9. SIMVASTATIN [Concomitant]
     Route: 048
  10. OMEPRAZOLE [Concomitant]
     Route: 048
  11. ETORICOXIB [Concomitant]
     Route: 048
  12. HYDROXYZINE [Concomitant]
     Route: 048

REACTIONS (1)
  - Pancreatitis [Unknown]
